FAERS Safety Report 5907498-8 (Version None)
Quarter: 2008Q3

REPORT INFORMATION
  Report Type: 
  Country: None (occurrence: None)
  Receive Date: 20080929
  Receipt Date: 20080918
  Transmission Date: 20090109
  Serious: Yes (Congenital Anomaly, Other)
  Sender: FDA-Public Use
  Company Number: GXKR2008GB01782

PATIENT

DRUGS (3)
  1. ENALAPRIL MALEATE [Suspect]
     Dosage: MATERNAL DOSE: 10 MG, QD, TRANSPLACENTEL
     Route: 064
     Dates: start: 20070201, end: 20070401
  2. LABETOL (LABETOL) [Concomitant]
  3. METHYLDOPA [Concomitant]

REACTIONS (14)
  - ABORTION INDUCED [None]
  - CARDIOMEGALY [None]
  - DRUG EXPOSURE DURING PREGNANCY [None]
  - FOETAL CARDIAC DISORDER [None]
  - FOETAL DISORDER [None]
  - FOETAL GROWTH RETARDATION [None]
  - JAW DISORDER [None]
  - MATERNAL DRUGS AFFECTING FOETUS [None]
  - MULTIPLE CONGENITAL ABNORMALITIES [None]
  - NASAL DISORDER [None]
  - OLIGOHYDRAMNIOS [None]
  - PLACENTAL DISORDER [None]
  - PULMONARY HYPOPLASIA [None]
  - PULMONARY MALFORMATION [None]
